FAERS Safety Report 8376660-X (Version None)
Quarter: 2012Q2

REPORT INFORMATION
  Report Type: 
  Country: None (occurrence: None)
  Receive Date: 20120522
  Receipt Date: 20120516
  Transmission Date: 20120825
  Serious: Yes (Hospitalization)
  Sender: FDA-Public Use
  Company Number: 2012SP001435

PATIENT
  Sex: Female

DRUGS (1)
  1. LATUDA [Suspect]
     Indication: PRODUCT USED FOR UNKNOWN INDICATION
     Route: 048

REACTIONS (3)
  - WEIGHT INCREASED [None]
  - HALLUCINATION, AUDITORY [None]
  - IRRITABILITY [None]
